FAERS Safety Report 5700733-0 (Version None)
Quarter: 2008Q2

REPORT INFORMATION
  Report Type: 
  Country: None (occurrence: None)
  Receive Date: 20080410
  Receipt Date: 20080311
  Transmission Date: 20081010
  Serious: No
  Sender: FDA-Public Use
  Company Number: A0707149A

PATIENT
  Age: 59 Year
  Sex: Female

DRUGS (3)
  1. TYKERB [Suspect]
     Indication: BREAST CANCER
     Dosage: 1250MG PER DAY
     Route: 048
     Dates: start: 20080102, end: 20080201
  2. XELODA [Suspect]
     Indication: BREAST CANCER
     Route: 065
     Dates: start: 20080102
  3. DIOVAN [Concomitant]

REACTIONS (3)
  - ERYTHEMA [None]
  - FREQUENT BOWEL MOVEMENTS [None]
  - RASH [None]
